FAERS Safety Report 14258554 (Version 1)
Quarter: 2017Q4

REPORT INFORMATION
  Report Type: Spontaneous
  Country: US (occurrence: US)
  Receive Date: 20171205
  Receipt Date: 20171205
  Transmission Date: 20180321
  Serious: No
  Sender: FDA-Public Use
  Company Number: None

PATIENT
  Age: 67 Year
  Sex: Female

DRUGS (8)
  1. LENVIMA [Concomitant]
     Active Substance: LENVATINIB
  2. AFINITOR [Concomitant]
     Active Substance: EVEROLIMUS
  3. GABAPENTIN. [Concomitant]
     Active Substance: GABAPENTIN
  4. LOSARTAN. [Concomitant]
     Active Substance: LOSARTAN
  5. MS CONTIN [Concomitant]
     Active Substance: MORPHINE SULFATE
  6. AFINITOR [Suspect]
     Active Substance: EVEROLIMUS
     Indication: RENAL CELL CARCINOMA
     Route: 048
     Dates: start: 20171129
  7. HYDROMORPHONE [Concomitant]
     Active Substance: HYDROMORPHONE
  8. PHENERGAN [Concomitant]
     Active Substance: PROMETHAZINE HYDROCHLORIDE

REACTIONS (3)
  - Nausea [None]
  - Headache [None]
  - Blood pressure increased [None]

NARRATIVE: CASE EVENT DATE: 20171204
